FAERS Safety Report 15315836 (Version 1)
Quarter: 2018Q3

REPORT INFORMATION
  Report Type: Spontaneous
  Country: US (occurrence: US)
  Receive Date: 20180824
  Receipt Date: 20180824
  Transmission Date: 20181010
  Serious: No
  Sender: FDA-Public Use
  Company Number: US-009507513-1808USA006859

PATIENT
  Sex: Female

DRUGS (1)
  1. NEXPLANON [Suspect]
     Active Substance: ETONOGESTREL
     Indication: CONTRACEPTION
     Dosage: 1 DF, UNK
     Route: 059
     Dates: start: 20130731, end: 20180802

REACTIONS (5)
  - Complication of device removal [Recovered/Resolved]
  - Incorrect drug administration duration [Unknown]
  - Encapsulation reaction [Recovered/Resolved]
  - Device breakage [Recovered/Resolved]
  - Implant site fibrosis [Recovered/Resolved]

NARRATIVE: CASE EVENT DATE: 20180802
